FAERS Safety Report 5954373-9 (Version None)
Quarter: 2008Q4

REPORT INFORMATION
  Report Type: 
  Country: None (occurrence: None)
  Receive Date: 20081113
  Receipt Date: 20081113
  Transmission Date: 20090506
  Serious: No
  Sender: FDA-Public Use
  Company Number: None

PATIENT
  Sex: Male
  Weight: 122.4712 kg

DRUGS (2)
  1. ACETAMINOPHEN AND HYDROCODONE BITARTRATE [Suspect]
     Indication: DIABETES MELLITUS
     Dosage: 1 EVERY 4 TO 6 HRS PAIN AT BEDTIME
  2. ACETAMINOPHEN AND HYDROCODONE BITARTRATE [Suspect]
     Indication: PAIN IN EXTREMITY
     Dosage: 1 EVERY 4 TO 6 HRS PAIN AT BEDTIME

REACTIONS (5)
  - DRUG EFFECT DECREASED [None]
  - DRUG INEFFECTIVE [None]
  - INSOMNIA [None]
  - PAIN [None]
  - PRODUCT QUALITY ISSUE [None]
